FAERS Safety Report 9609298 (Version 2)
Quarter: 2013Q4

REPORT INFORMATION
  Report Type: Spontaneous
  Country: FR (occurrence: FR)
  Receive Date: 20131009
  Receipt Date: 20131009
  Transmission Date: 20140711
  Serious: Yes (Other)
  Sender: FDA-Public Use
  Company Number: FR-UCBSA-078743

PATIENT
  Sex: Female

DRUGS (2)
  1. VIMPAT [Suspect]
     Indication: PARTIAL SEIZURES
     Route: 048
  2. LAMICTAL [Concomitant]
     Indication: PARTIAL SEIZURES

REACTIONS (2)
  - Abortion [Unknown]
  - Pregnancy [Recovered/Resolved]
